FAERS Safety Report 18725633 (Version 1)
Quarter: 2021Q1

REPORT INFORMATION
  Report Type: Spontaneous
  Country: GB (occurrence: GB)
  Receive Date: 20210111
  Receipt Date: 20210111
  Transmission Date: 20210419
  Serious: Yes (Life-Threatening, Hospitalization, Other)
  Sender: FDA-Public Use
  Company Number: GB-TEVA-2021-GB-1866288

PATIENT
  Age: 50 Year
  Sex: Male
  Weight: 123 kg

DRUGS (5)
  1. OMEPRAZOLE. [Concomitant]
     Active Substance: OMEPRAZOLE
     Indication: DYSPEPSIA
     Dosage: 20MG
     Dates: start: 20201007
  2. FLUCLOXACILLIN [Concomitant]
     Active Substance: FLUCLOXACILLIN
     Dosage: 2000MG
     Dates: start: 20201211
  3. DERMOL [Concomitant]
     Active Substance: BENZALKONIUM CHLORIDE\CHLORHEXIDINE HYDROCHLORIDE\ISOPROPYL MYRISTATE\PARAFFIN
     Dosage: SOAP SUBSTITUTE: TO BE APPLIED
     Dates: start: 20201211
  4. NAPROXEN. [Concomitant]
     Active Substance: NAPROXEN
     Indication: ARTHRALGIA
     Dosage: TAKE WITH FOOD.500MG
     Dates: start: 20201007
  5. PREDNISOLONE. [Suspect]
     Active Substance: PREDNISOLONE
     Indication: VOMITING
     Dosage: 1MG
     Route: 048

REACTIONS (2)
  - Oedema [Recovering/Resolving]
  - Pharyngeal swelling [Recovering/Resolving]

NARRATIVE: CASE EVENT DATE: 20201115
